FAERS Safety Report 9233080 (Version 1)
Quarter: 2013Q2

REPORT INFORMATION
  Report Type: Spontaneous
  Country: US (occurrence: None)
  Receive Date: 20130415
  Receipt Date: 20130415
  Transmission Date: 20140414
  Serious: Yes (Other)
  Sender: FDA-Public Use
  Company Number: None

PATIENT
  Age: 22 Year
  Sex: Male
  Weight: 47.63 kg

DRUGS (2)
  1. EXJADE [Suspect]
     Indication: MITOCHONDRIAL CYTOPATHY
     Dosage: LINE THRU REPORT?10/?1/2012-04/01/2013?1?00 MG DAILY BY MOUTH?M?TOCHONDRIAL DISORDER?IR?N OVERLOAD?LOT!?F01?4 ?EXP DATE ?08/31/2015
     Route: 048
     Dates: start: 20121001, end: 20130401
  2. EXJADE [Suspect]
     Indication: IRON OVERLOAD
     Dosage: LINE THRU REPORT?10/?1/2012-04/01/2013?1?00 MG DAILY BY MOUTH?M?TOCHONDRIAL DISORDER?IR?N OVERLOAD?LOT!?F01?4 ?EXP DATE ?08/31/2015
     Route: 048
     Dates: start: 20121001, end: 20130401

REACTIONS (1)
  - Blood creatinine increased [None]
